FAERS Safety Report 17663828 (Version 1)
Quarter: 2020Q2

REPORT INFORMATION
  Report Type: Spontaneous
  Country: DE (occurrence: DE)
  Receive Date: 20200414
  Receipt Date: 20200414
  Transmission Date: 20200713
  Serious: Yes (Congenital Anomaly)
  Sender: FDA-Public Use
  Company Number: DE-HETERO-HET2020DE00402

PATIENT
  Age: 8 Month
  Sex: Male
  Weight: 3 kg

DRUGS (4)
  1. JODID [Concomitant]
     Active Substance: IODINE
     Indication: IODINE DEFICIENCY
     Dosage: UNK
     Route: 064
  2. ASPRIN [Concomitant]
     Active Substance: ASPIRIN
     Indication: FACTOR V DEFICIENCY
     Dosage: UNK
     Route: 064
     Dates: start: 20131123, end: 20140818
  3. TOPIRAMAT [Suspect]
     Active Substance: TOPIRAMATE
     Indication: EPILEPSY
     Dosage: 25 MG, QD
     Route: 064
     Dates: start: 20131123, end: 20140818
  4. LEVETIRACETAM. [Suspect]
     Active Substance: LEVETIRACETAM
     Indication: EPILEPSY
     Dosage: 1000 MG, QD
     Route: 064
     Dates: start: 20131123, end: 20140818

REACTIONS (2)
  - Foetal exposure during pregnancy [Recovered/Resolved]
  - Dysmorphism [Not Recovered/Not Resolved]

NARRATIVE: CASE EVENT DATE: 20131007
